FAERS Safety Report 10452075 (Version 1)
Quarter: 2014Q3

REPORT INFORMATION
  Report Type: Spontaneous
  Country: US (occurrence: None)
  Receive Date: 20140912
  Receipt Date: 20140912
  Transmission Date: 20150326
  Serious: Yes (Death)
  Sender: FDA-Public Use
  Company Number: None

PATIENT

DRUGS (1)
  1. D5W AND NACL 0.45% [Suspect]
     Active Substance: DEXTROSE\SODIUM CHLORIDE

REACTIONS (2)
  - Drug dispensing error [None]
  - Intercepted drug dispensing error [None]
